FAERS Safety Report 5868609-6 (Version None)
Quarter: 2008Q3

REPORT INFORMATION
  Report Type: 
  Country: None (occurrence: None)
  Receive Date: 20080903
  Receipt Date: 20080825
  Transmission Date: 20090109
  Serious: Yes (Hospitalization)
  Sender: FDA-Public Use
  Company Number: US-TEVA-176415USA

PATIENT
  Age: 29 Year
  Sex: Female

DRUGS (5)
  1. MERCAPTOPURINE [Suspect]
  2. MESALAMINE [Interacting]
  3. PREDNISONE TAB [Concomitant]
  4. CLIDINIUM BROMIDE [Concomitant]
  5. CHLORDIAZEPOXIDE [Concomitant]

REACTIONS (1)
  - PALMAR-PLANTAR ERYTHRODYSAESTHESIA SYNDROME [None]
